FAERS Safety Report 7600654-2 (Version None)
Quarter: 2011Q3

REPORT INFORMATION
  Report Type: 
  Country: None (occurrence: None)
  Receive Date: 20110711
  Receipt Date: 20110630
  Transmission Date: 20111222
  Serious: Yes (Hospitalization)
  Sender: FDA-Public Use
  Company Number: US-ROCHE-787530

PATIENT
  Age: 58 Year
  Sex: Male
  Weight: 76.5 kg

DRUGS (3)
  1. SPRYCEL [Suspect]
     Indication: GLIOBLASTOMA MULTIFORME
     Route: 065
     Dates: start: 20110602
  2. SPRYCEL [Suspect]
     Route: 065
     Dates: start: 20110616
  3. BEVACIZUMAB [Suspect]
     Indication: GLIOBLASTOMA MULTIFORME
     Route: 042
     Dates: start: 20110602

REACTIONS (5)
  - DECREASED APPETITE [None]
  - DIARRHOEA [None]
  - BLOOD CREATININE [None]
  - DEHYDRATION [None]
  - BLOOD UREA INCREASED [None]
